FAERS Safety Report 5664485-5 (Version None)
Quarter: 2008Q1

REPORT INFORMATION
  Report Type: 
  Country: None (occurrence: None)
  Receive Date: 20080314
  Receipt Date: 20080303
  Transmission Date: 20080703
  Serious: Yes (Other)
  Sender: FDA-Public Use
  Company Number: B0502155A

PATIENT
  Sex: Female

DRUGS (12)
  1. PAROXETINE HCL [Suspect]
     Indication: DEPRESSION
     Dates: start: 20050728
  2. DIAZEPAM [Concomitant]
     Indication: DEPRESSION
     Dates: start: 20010901
  3. PREDNISOLONE [Concomitant]
     Indication: ADRENAL INSUFFICIENCY
     Dates: start: 20051101
  4. LEVOTHYROXINE SODIUM [Concomitant]
     Indication: HYPOTHYROIDISM
     Dates: start: 20030501
  5. ZOPICLONE [Concomitant]
  6. AMITRIPTYLINE HCL [Concomitant]
  7. SERTRALINE [Concomitant]
  8. GABAPENTIN [Concomitant]
  9. DICLOFENAC [Concomitant]
  10. NAPROXEN [Concomitant]
  11. LANSOPRAZOLE [Concomitant]
  12. RANITIDINE [Concomitant]

REACTIONS (6)
  - DEPRESSED MOOD [None]
  - DRUG WITHDRAWAL SYNDROME [None]
  - FEELING ABNORMAL [None]
  - MENOPAUSAL SYMPTOMS [None]
  - POOR QUALITY SLEEP [None]
  - SUICIDAL IDEATION [None]
